FAERS Safety Report 8201901-9 (Version None)
Quarter: 2012Q1

REPORT INFORMATION
  Report Type: 
  Country: None (occurrence: None)
  Receive Date: 20120312
  Receipt Date: 20120301
  Transmission Date: 20120608
  Serious: Yes (Hospitalization)
  Sender: FDA-Public Use
  Company Number: GB-BRISTOL-MYERS SQUIBB COMPANY-16427767

PATIENT
  Age: 75 Year

DRUGS (1)
  1. IPILIMUMAB [Suspect]
     Indication: MALIGNANT MELANOMA
     Dosage: 1DF=3COURSES LAST DOSE ON OCT11
     Route: 042
     Dates: start: 20110701, end: 20111001

REACTIONS (1)
  - AORTIC VALVE REPLACEMENT [None]
